FAERS Safety Report 8118244 (Version 3)
Quarter: 2013Q3

REPORT INFORMATION
  Report Type: Spontaneous
  Country: US (occurrence: US)
  Receive Date: 20110902
  Receipt Date: 20130724
  Transmission Date: 20140515
  Serious: Yes (Hospitalization)
  Sender: FDA-Public Use
  Company Number: US-US-EMD SERONO, INC.-7078911

PATIENT
  Age: 53 Year
  Sex: Female

DRUGS (4)
  1. REBIF [Suspect]
     Indication: MULTIPLE SCLEROSIS
     Route: 058
     Dates: start: 20040101
  2. GABAPENTIN [Concomitant]
     Indication: PAIN
  3. AMBIEN (ZOLPIDEM) [Concomitant]
     Indication: SLEEP DISORDER
  4. ALEVE                              /00256202/ [Concomitant]
     Indication: ARTHRITIS

REACTIONS (3)
  - Rheumatoid arthritis [Recovering/Resolving]
  - Meniscus injury [Recovered/Resolved]
  - Injection site pain [Unknown]
